FAERS Safety Report 6587670-7 (Version None)
Quarter: 2010Q1

REPORT INFORMATION
  Report Type: 
  Country: None (occurrence: None)
  Receive Date: 20100217
  Receipt Date: 20100217
  Transmission Date: 20100710
  Serious: Yes (Other)
  Sender: FDA-Public Use
  Company Number: None

PATIENT
  Sex: Male
  Weight: 99.7913 kg

DRUGS (2)
  1. CYMBALTA [Suspect]
     Indication: ANXIETY
     Dosage: 90MG ONCE PO, ON CYMBALTA
     Route: 048
  2. CYMBALTA [Suspect]
     Indication: NEURALGIA
     Dosage: 90MG ONCE PO, ON CYMBALTA
     Route: 048

REACTIONS (3)
  - ANXIETY [None]
  - MUSCLE TWITCHING [None]
  - PARAESTHESIA [None]
